FAERS Safety Report 8373258-4 (Version None)
Quarter: 2012Q2

REPORT INFORMATION
  Report Type: 
  Country: None (occurrence: None)
  Receive Date: 20120521
  Receipt Date: 20120511
  Transmission Date: 20120825
  Serious: Yes (Other)
  Sender: FDA-Public Use
  Company Number: FR-BAYER-2012-047234

PATIENT
  Age: 41 Year
  Sex: Female

DRUGS (1)
  1. CONVULINE [Suspect]
     Dosage: UNK
     Dates: start: 20110601

REACTIONS (3)
  - ARRHYTHMIA [None]
  - CARDIAC DISORDER [None]
  - DYSPNOEA EXERTIONAL [None]
